FAERS Safety Report 6203656-6 (Version None)
Quarter: 2009Q2

REPORT INFORMATION
  Report Type: 
  Country: None (occurrence: None)
  Receive Date: 20090518
  Receipt Date: 20090224
  Transmission Date: 20091009
  Serious: No
  Sender: FDA-Public Use
  Company Number: WAES 0902USA04238

PATIENT
  Age: 53 Year
  Sex: Male

DRUGS (8)
  1. JANUVIA [Suspect]
     Indication: TYPE 2 DIABETES MELLITUS
     Dosage: DAILY/PO
     Route: 048
     Dates: start: 20090217
  2. CRESTOR [Concomitant]
  3. KLONOPIN [Concomitant]
  4. PLAVIX [Concomitant]
  5. TENORMIN [Concomitant]
  6. ZANTAC [Concomitant]
  7. DOXYCYCLINE [Concomitant]
  8. METFORMIN [Concomitant]

REACTIONS (2)
  - BLOOD GLUCOSE INCREASED [None]
  - WRONG TECHNIQUE IN DRUG USAGE PROCESS [None]
